FAERS Safety Report 19402054 (Version 1)
Quarter: 2021Q2

REPORT INFORMATION
  Report Type: Spontaneous
  Country: US (occurrence: US)
  Receive Date: 20210610
  Receipt Date: 20210610
  Transmission Date: 20210717
  Serious: No
  Sender: FDA-Public Use
  Company Number: US-PFIZER INC-2021615596

PATIENT
  Age: 85 Year
  Sex: Female

DRUGS (3)
  1. TOZINAMERAN. [Suspect]
     Active Substance: TOZINAMERAN
     Indication: COVID-19 IMMUNISATION
     Dosage: 2ND DOSE, SINGLE
  2. TOZINAMERAN. [Suspect]
     Active Substance: TOZINAMERAN
     Dosage: 1ST DOSE, SINGLE
     Dates: start: 202104, end: 202104
  3. PREMPRO [Suspect]
     Active Substance: ESTROGENS, CONJUGATED\MEDROXYPROGESTERONE ACETATE
     Dosage: 0.625/2.5MG TABLET ONCE A DAY
     Route: 048
     Dates: start: 1991

REACTIONS (2)
  - Feeling abnormal [Unknown]
  - Hot flush [Unknown]

NARRATIVE: CASE EVENT DATE: 20210527
